FAERS Safety Report 24086844 (Version 2)
Quarter: 2024Q3

REPORT INFORMATION
  Report Type: Spontaneous
  Country: GB (occurrence: GB)
  Receive Date: 20240713
  Receipt Date: 20240724
  Transmission Date: 20241017
  Serious: No
  Sender: Waylis
  Company Number: GB-WT-2024-068335

PATIENT
  Age: 28 Year
  Sex: Male

DRUGS (1)
  1. DUTASTERIDE [Suspect]
     Active Substance: DUTASTERIDE
     Indication: Androgenetic alopecia
     Route: 065
     Dates: start: 202305

REACTIONS (1)
  - Product use in unapproved indication [Unknown]
